FAERS Safety Report 9029297 (Version 3)
Quarter: 2013Q1

REPORT INFORMATION
  Report Type: Spontaneous
  Country: JP (occurrence: JP)
  Receive Date: 20130124
  Receipt Date: 20130220
  Transmission Date: 20140127
  Serious: Yes (Other)
  Sender: FDA-Public Use
  Company Number: JP-PFIZER INC-2013019112

PATIENT
  Age: 37 Year
  Sex: Male
  Weight: 55.3 kg

DRUGS (3)
  1. SOLU-MEDROL [Suspect]
     Indication: ANTIINFLAMMATORY THERAPY
     Dosage: 1000 MG DAILY
     Route: 041
     Dates: start: 20110210, end: 20110213
  2. PREDNISOLONE [Suspect]
     Dosage: 50 MG, 3X/DAY
     Route: 048
     Dates: start: 20110214, end: 20110216
  3. OMEPRAL [Suspect]
     Dosage: 20 MG, 1X/DAY
     Route: 048
     Dates: start: 20110210, end: 20110324

REACTIONS (1)
  - Retinal detachment [Recovered/Resolved with Sequelae]
